FAERS Safety Report 12487684 (Version 1)
Quarter: 2016Q2

REPORT INFORMATION
  Report Type: Spontaneous
  Country: ES (occurrence: ES)
  Receive Date: 20160622
  Receipt Date: 20160622
  Transmission Date: 20160815
  Serious: Yes (Other)
  Sender: FDA-Public Use
  Company Number: ES-ACCORD-041712

PATIENT
  Age: 66 Year
  Sex: Female
  Weight: 52 kg

DRUGS (2)
  1. ACCORD PACLITAXEL [Suspect]
     Active Substance: PACLITAXEL
     Indication: OVARIAN CANCER
     Dosage: STRENGTH 6 MG/ML
     Route: 042
     Dates: start: 20160420, end: 20160420
  2. PHARMACIA CARBOPLATIN [Concomitant]
     Indication: OVARIAN CANCER
     Dosage: 10 MG/ML?C/ 21 DAYS
     Route: 042
     Dates: start: 20160420, end: 20160420

REACTIONS (3)
  - Dyspnoea [Recovered/Resolved]
  - Feeling hot [Recovered/Resolved]
  - Infusion related reaction [Recovered/Resolved]

NARRATIVE: CASE EVENT DATE: 20160420
